FAERS Safety Report 15228032 (Version 1)
Quarter: 2018Q3

REPORT INFORMATION
  Report Type: Spontaneous
  Country: US (occurrence: US)
  Receive Date: 20180801
  Receipt Date: 20180801
  Transmission Date: 20181010
  Serious: Yes (Other)
  Sender: FDA-Public Use
  Company Number: US-SA-2018SA168976

PATIENT
  Sex: Male

DRUGS (1)
  1. ARAVA [Suspect]
     Active Substance: LEFLUNOMIDE
     Dosage: UNK UNK, UNK

REACTIONS (6)
  - Neuropathy peripheral [Unknown]
  - Herpes zoster [Unknown]
  - Alopecia [Unknown]
  - Pruritus [Unknown]
  - Migraine [Unknown]
  - Vasculitis [Unknown]
